FAERS Safety Report 11290605 (Version 1)
Quarter: 2015Q3

REPORT INFORMATION
  Report Type: Spontaneous
  Country: US (occurrence: US)
  Receive Date: 20150722
  Receipt Date: 20150722
  Transmission Date: 20151125
  Serious: No
  Sender: FDA-Public Use
  Company Number: US-UNITED THERAPEUTICS-UNT-2015-004697

PATIENT
  Age: 75 Year
  Sex: Female
  Weight: 72.56 kg

DRUGS (4)
  1. REVATIO [Concomitant]
     Active Substance: SILDENAFIL CITRATE
     Indication: PRODUCT USED FOR UNKNOWN INDICATION
  2. REMODULIN [Suspect]
     Active Substance: TREPROSTINIL
     Indication: PULMONARY ARTERIAL HYPERTENSION
     Dosage: 0.056 ?G/KG/MIN, CONTINUING
     Route: 041
     Dates: start: 20081126
  3. WARFARIN [Concomitant]
     Active Substance: WARFARIN
     Indication: PRODUCT USED FOR UNKNOWN INDICATION
  4. REMODULIN [Suspect]
     Active Substance: TREPROSTINIL
     Dosage: UNK
     Dates: start: 20081119

REACTIONS (12)
  - Diarrhoea [Unknown]
  - Pallor [Unknown]
  - Neck pain [Unknown]
  - Pain in extremity [Unknown]
  - Condition aggravated [Unknown]
  - Abdominal distension [Unknown]
  - Cough [Unknown]
  - Flushing [Unknown]
  - Oedema [Unknown]
  - Overwork [Unknown]
  - Headache [Unknown]
  - Stress [Unknown]

NARRATIVE: CASE EVENT DATE: 20150420
